FAERS Safety Report 13622977 (Version 1)
Quarter: 2017Q2

REPORT INFORMATION
  Report Type: Spontaneous
  Country: US (occurrence: US)
  Receive Date: 20170607
  Receipt Date: 20170607
  Transmission Date: 20170830
  Serious: No
  Sender: FDA-Public Use
  Company Number: US-PURDUE-USA-2016-0133012

PATIENT
  Age: 61 Year
  Sex: Female

DRUGS (1)
  1. BUTRANS [Suspect]
     Active Substance: BUPRENORPHINE
     Indication: PAIN
     Dosage: 15 MCG, Q5 DAY
     Route: 062

REACTIONS (7)
  - Application site pruritus [Unknown]
  - Drug effect decreased [Unknown]
  - Breakthrough pain [Not Recovered/Not Resolved]
  - Inappropriate schedule of drug administration [Not Recovered/Not Resolved]
  - Feeling of body temperature change [Unknown]
  - Application site rash [Unknown]
  - Anxiety [Unknown]
